FAERS Safety Report 12037468 (Version 1)
Quarter: 2016Q1

REPORT INFORMATION
  Report Type: Spontaneous
  Country: US (occurrence: US)
  Receive Date: 20160208
  Receipt Date: 20160208
  Transmission Date: 20160526
  Serious: Yes (Death)
  Sender: FDA-Public Use
  Company Number: US-FRESENIUS KABI-FK201600620

PATIENT
  Sex: Male

DRUGS (3)
  1. ESTRAMUSTINE [Suspect]
     Active Substance: ESTRAMUSTINE
     Indication: PROSTATE CANCER METASTATIC
  2. ETOPOSIDE (MANUFACTURER UNKNOWN) [Suspect]
     Active Substance: ETOPOSIDE
     Indication: PROSTATE CANCER METASTATIC
     Route: 065
  3. PACLITAXEL (MANUFACTURER UNKNOWN) [Suspect]
     Active Substance: PACLITAXEL
     Indication: PROSTATE CANCER METASTATIC
     Route: 065

REACTIONS (1)
  - Neutropenic infection [Fatal]
